FAERS Safety Report 4900661-4 (Version None)
Quarter: 2006Q1

REPORT INFORMATION
  Report Type: 
  Country: None (occurrence: None)
  Receive Date: 20060201
  Receipt Date: 20060110
  Transmission Date: 20060701
  Serious: Yes (Hospitalization, Other)
  Sender: FDA-Public Use
  Company Number: US_000541596

PATIENT
  Age: 81 Year
  Sex: Female
  Weight: 62.7 kg

DRUGS (4)
  1. HUMULIN N [Suspect]
     Indication: DIABETES MELLITUS
     Dosage: 30 U, DAILY (1/D), SUBCUTANEOUS
     Route: 058
  2. UNSPECIFIED BLOOD PRESSURE MEDICATION [Concomitant]
  3. DIOVAN [Concomitant]
  4. HUMULIN NPH PEN (HUMULIN N PEN) PEN,DISPOSABLE [Concomitant]

REACTIONS (35)
  - ABSCESS [None]
  - ABSCESS LIMB [None]
  - ALCOHOLISM [None]
  - BLOOD GLUCOSE INCREASED [None]
  - BREAST CANCER [None]
  - CARDIAC FAILURE [None]
  - CAROTID ARTERY OCCLUSION [None]
  - CONDITION AGGRAVATED [None]
  - CORONARY ARTERY OCCLUSION [None]
  - DIABETIC COMPLICATION [None]
  - DIABETIC FOOT [None]
  - DIABETIC NEUROPATHY [None]
  - DRUG INEFFECTIVE [None]
  - EMPHYSEMA [None]
  - ERYTHEMA [None]
  - FACIAL BONES FRACTURE [None]
  - FALL [None]
  - HYPERSOMNIA [None]
  - HYPERTENSION [None]
  - INJECTION SITE DISCOMFORT [None]
  - INJECTION SITE HAEMORRHAGE [None]
  - INJECTION SITE PAIN [None]
  - LOCALISED INFECTION [None]
  - MALAISE [None]
  - MYOCARDIAL INFARCTION [None]
  - PHARMACEUTICAL PRODUCT COMPLAINT [None]
  - PULSE ABSENT [None]
  - RENAL ARTERY OCCLUSION [None]
  - RENAL FAILURE [None]
  - RIB FRACTURE [None]
  - SKIN DISCOLOURATION [None]
  - SKIN ULCER [None]
  - SPEECH DISORDER [None]
  - SUBCUTANEOUS NODULE [None]
  - THROMBOSIS [None]
